FAERS Safety Report 25328940 (Version 1)
Quarter: 2025Q2

REPORT INFORMATION
  Report Type: Spontaneous
  Country: BR (occurrence: BR)
  Receive Date: 20250519
  Receipt Date: 20250519
  Transmission Date: 20250716
  Serious: Yes (Hospitalization)
  Sender: NOVO NORDISK
  Company Number: BR-NOVOPROD-1427049

PATIENT
  Age: 36 Year

DRUGS (3)
  1. WEGOVY [Suspect]
     Active Substance: SEMAGLUTIDE
     Indication: Product used for unknown indication
  2. WEGOVY [Suspect]
     Active Substance: SEMAGLUTIDE
     Indication: Product used for unknown indication
     Dates: end: 202503
  3. RETINOL [Concomitant]
     Active Substance: RETINOL

REACTIONS (8)
  - Anosmia [Unknown]
  - Early satiety [Unknown]
  - Oesophagitis [Unknown]
  - Lack of satiety [Unknown]
  - Dehydration [Unknown]
  - Nausea [Not Recovered/Not Resolved]
  - Vomiting [Not Recovered/Not Resolved]
  - Weight decreased [Unknown]
